FAERS Safety Report 4395969-8 (Version None)
Quarter: 2004Q3

REPORT INFORMATION
  Report Type: 
  Country: None (occurrence: None)
  Receive Date: 20040709
  Receipt Date: 20040628
  Transmission Date: 20050211
  Serious: Yes (Death)
  Sender: FDA-Public Use
  Company Number: 2004221922US

PATIENT

DRUGS (2)
  1. HEPARIN SODIUM INJECTION [Suspect]
     Dosage: 0.5 MG/KG
  2. MANNITOL [Concomitant]

REACTIONS (3)
  - MULTI-ORGAN FAILURE [None]
  - POST PROCEDURAL COMPLICATION [None]
  - POST PROCEDURAL HAEMORRHAGE [None]
